FAERS Safety Report 9682625 (Version 10)
Quarter: 2014Q2

REPORT INFORMATION
  Report Type: Spontaneous
  Country: US (occurrence: US)
  Receive Date: 20131112
  Receipt Date: 20140626
  Transmission Date: 20141212
  Serious: Yes (Life-Threatening, Hospitalization, Other)
  Sender: FDA-Public Use
  Company Number: US-JNJFOC-20131018127

PATIENT
  Age: 66 Year
  Sex: Female
  Weight: 92.7 kg

DRUGS (6)
  1. EXTRA STRENGTH TYLENOL [Suspect]
     Route: 065
  2. EXTRA STRENGTH TYLENOL [Suspect]
     Indication: PAIN
     Route: 065
     Dates: start: 201111, end: 201112
  3. REGULAR STRENGTH TYLENOL [Suspect]
     Route: 065
  4. REGULAR STRENGTH TYLENOL [Suspect]
     Indication: PAIN
     Route: 065
     Dates: start: 201111, end: 201112
  5. VICODIN [Suspect]
     Indication: PAIN
     Route: 065
     Dates: start: 201111, end: 201112
  6. ACETAMINOPHEN [Suspect]
     Indication: PAIN
     Route: 065

REACTIONS (11)
  - Polyneuropathy [Unknown]
  - Urinary retention [Unknown]
  - Adrenocortical insufficiency acute [Unknown]
  - Malnutrition [Unknown]
  - Acute hepatic failure [Recovering/Resolving]
  - Hepatic necrosis [Recovered/Resolved]
  - Encephalopathy [Recovered/Resolved]
  - Metabolic acidosis [Recovered/Resolved]
  - Renal failure acute [Recovering/Resolving]
  - Coagulopathy [Unknown]
  - Accidental overdose [Unknown]
